FAERS Safety Report 18137291 (Version 1)
Quarter: 2020Q3

REPORT INFORMATION
  Report Type: Spontaneous
  Country: GB (occurrence: GB)
  Receive Date: 20200812
  Receipt Date: 20200812
  Transmission Date: 20201103
  Serious: Yes (Other)
  Sender: FDA-Public Use
  Company Number: GB-TEVA-2020-GB-1812337

PATIENT
  Age: 70 Year
  Sex: Female
  Weight: 69 kg

DRUGS (13)
  1. ACETYLSALICYLIC ACID [Concomitant]
     Active Substance: ASPIRIN
     Dosage: WITH OR AFTER FOOD:UNIT DOSE:1 DOSAGEFORM
     Dates: start: 20200414
  2. NASEPTIN [Concomitant]
     Active Substance: CHLORHEXIDINE HYDROCHLORIDE\NEOMYCIN SULFATE
     Dosage: 16 DOSAGE FORMS DAILY; USE 4 TIMES A DAY 7 TO 10 DAYS
     Dates: start: 20200518, end: 20200525
  3. FUROSEMIDE. [Concomitant]
     Active Substance: FUROSEMIDE
     Dosage: 1 DOSAGE FORMS DAILY; MORNING
     Dates: start: 20200423, end: 20200521
  4. RAMIPRIL. [Concomitant]
     Active Substance: RAMIPRIL
     Dosage: TAKE ONE CAPSULE TWICE A DAY
     Dates: start: 20200414
  5. HYPROMELLOSE [Concomitant]
     Active Substance: HYPROMELLOSES
     Dosage: 16 DOSAGE FORMS DAILY;
     Dates: start: 20200221
  6. GLYCERYL TRINITRATE [Concomitant]
     Active Substance: NITROGLYCERIN
     Indication: CHEST PAIN
     Dosage: USE ONE SPRAY UNDER TONGUE FOR CHEST PAIN:UNIT DOSE:1 DOSAGEFORM
     Route: 060
     Dates: start: 20200514
  7. AMLODIPINE [Concomitant]
     Active Substance: AMLODIPINE BESYLATE
     Dosage: UNIT DOSE:1 DOSAGEFORM
     Dates: start: 20200615
  8. ATORVASTATIN [Suspect]
     Active Substance: ATORVASTATIN
     Dosage: 40 MILLIGRAM
     Dates: start: 20200414
  9. CALCICHEW D3 [Concomitant]
     Active Substance: CALCIUM\CHOLECALCIFEROL
     Dosage: 1 DOSAGEFORM
     Dates: start: 20191218
  10. CARBOMER 980 [Concomitant]
     Active Substance: CARBOMER HOMOPOLYMER TYPE C (ALLYL PENTAERYTHRITOL CROSSLINKED)
     Dosage: PUT ONE DROP INTO THE AFFECTED EYE(S) THREE:UNIT DOSE:1GTT
     Dates: start: 20200414
  11. BISOPROLOL [Concomitant]
     Active Substance: BISOPROLOL
     Dosage: 1 DOSAGEFORM
     Dates: start: 20200414
  12. TICAGRELOR. [Concomitant]
     Active Substance: TICAGRELOR
     Dosage: TAKE ONE TABLET TWICE A DAY
     Dates: start: 20200414
  13. OMEPRAZOLE. [Concomitant]
     Active Substance: OMEPRAZOLE
     Dosage: 1 DOSAGE FORMS DAILY;
     Dates: start: 20200414

REACTIONS (1)
  - Hepatic function abnormal [Recovering/Resolving]

NARRATIVE: CASE EVENT DATE: 20200717
